FAERS Safety Report 12279755 (Version 2)
Quarter: 2016Q3

REPORT INFORMATION
  Report Type: Report from Study
  Country: IT (occurrence: IT)
  Receive Date: 20160418
  Receipt Date: 20160906
  Transmission Date: 20161109
  Serious: Yes (Death, Other)
  Sender: FDA-Public Use
  Company Number: IT-PFIZER INC-2016207480

PATIENT
  Age: 64 Year
  Sex: Female

DRUGS (9)
  1. IRINOTECAN HCL [Suspect]
     Active Substance: IRINOTECAN HYDROCHLORIDE
     Indication: COLORECTAL CANCER METASTATIC
     Dosage: 287.3 MG, CYCLIC
     Route: 042
     Dates: start: 20160323, end: 20160323
  2. ZALTRAP [Suspect]
     Active Substance: ZIV-AFLIBERCEPT
     Indication: COLORECTAL CANCER METASTATIC
     Dosage: 264 MG, CYCLIC
     Route: 042
     Dates: start: 20160323, end: 20160323
  3. LEUCOVORIN /00566701/ [Suspect]
     Active Substance: LEUCOVORIN
     Indication: COLORECTAL CANCER METASTATIC
     Dosage: 638.5 MG, CYCLIC
     Route: 042
     Dates: start: 20160323, end: 20160323
  4. DEXAMETHASONE. [Concomitant]
     Active Substance: DEXAMETHASONE
     Dosage: 8 MG, UNK
     Route: 042
     Dates: start: 20160323, end: 20160323
  5. ATROPINE. [Concomitant]
     Active Substance: ATROPINE
     Dosage: 0.2 MG, UNK
     Route: 042
     Dates: start: 20160323, end: 20160323
  6. IRINOTECAN HCL [Suspect]
     Active Substance: IRINOTECAN HYDROCHLORIDE
     Dosage: UNK
     Route: 042
  7. FLUOROURACIL. [Suspect]
     Active Substance: FLUOROURACIL
     Indication: COLORECTAL CANCER METASTATIC
     Dosage: 638.5 MG, CYCLIC
     Route: 040
     Dates: start: 20160323, end: 20160323
  8. PALONOSETRON [Concomitant]
     Active Substance: PALONOSETRON
     Dosage: 250 UG, UNK
     Route: 042
     Dates: start: 20160323, end: 20160323
  9. FLUOROURACIL. [Suspect]
     Active Substance: FLUOROURACIL
     Dosage: 3831 MG, CYCLIC
     Route: 041
     Dates: start: 20160323, end: 20160325

REACTIONS (4)
  - Anaemia [Not Recovered/Not Resolved]
  - Platelet count decreased [Not Recovered/Not Resolved]
  - Febrile neutropenia [Fatal]
  - White blood cell count decreased [Not Recovered/Not Resolved]

NARRATIVE: CASE EVENT DATE: 20160403
